FAERS Safety Report 8666730 (Version 4)
Quarter: 2013Q1

REPORT INFORMATION
  Report Type: Spontaneous
  Country: US (occurrence: US)
  Receive Date: 20120716
  Receipt Date: 20130211
  Transmission Date: 20140127
  Serious: Yes (Hospitalization, Other)
  Sender: FDA-Public Use
  Company Number: US-ELI_LILLY_AND_COMPANY-US201207002212

PATIENT
  Sex: Male

DRUGS (1)
  1. ADCIRCA [Suspect]
     Indication: PULMONARY HYPERTENSION
     Dosage: 40 MG, QD
     Route: 048
     Dates: start: 20110401

REACTIONS (4)
  - Lung neoplasm malignant [Recovering/Resolving]
  - Pneumonia bacterial [Recovering/Resolving]
  - Malaise [Recovered/Resolved]
  - Cough [Recovered/Resolved]
